FAERS Safety Report 11202582 (Version 6)
Quarter: 2015Q4

REPORT INFORMATION
  Report Type: Spontaneous
  Country: US (occurrence: US)
  Receive Date: 20150619
  Receipt Date: 20151013
  Transmission Date: 20160304
  Serious: Yes (Other)
  Sender: FDA-Public Use
  Company Number: US-PFIZER INC-2014281806

PATIENT
  Age: 34 Year
  Sex: Male
  Weight: 79.37 kg

DRUGS (7)
  1. SUTENT [Suspect]
     Active Substance: SUNITINIB MALATE
     Indication: THYMIC CANCER METASTATIC
     Dosage: 50 MG, CYCLIC (DAILY X 28 DAYS, OFF X 14 DAYS)
     Route: 048
     Dates: start: 20121109, end: 20150617
  2. PERIDEX [Concomitant]
     Active Substance: CHLORHEXIDINE GLUCONATE
     Dosage: 15 ML, 2X/DAY
     Route: 048
  3. IBUPROFEN. [Concomitant]
     Active Substance: IBUPROFEN
     Indication: PAIN
     Dosage: UNK UNK, AS NEEDED
  4. VITAMIN D3 [Concomitant]
     Active Substance: CHOLECALCIFEROL
     Dosage: 2000 IU, AS NEEDED
     Route: 048
  5. SUTENT [Suspect]
     Active Substance: SUNITINIB MALATE
     Dosage: 50 MG, CYCLIC (14DAYS, 7 DAYS OFF )
     Route: 048
     Dates: start: 20121109, end: 20150702
  6. SUTENT [Suspect]
     Active Substance: SUNITINIB MALATE
     Dosage: UNK
  7. ZOMETA [Suspect]
     Active Substance: ZOLEDRONIC ACID
     Indication: THYMOMA MALIGNANT

REACTIONS (12)
  - Erythema [Unknown]
  - Anaemia [Unknown]
  - Oral pain [Recovering/Resolving]
  - Disease progression [Unknown]
  - Thymic cancer metastatic [Unknown]
  - Rhabdomyolysis [Recovering/Resolving]
  - Chronic kidney disease [Recovering/Resolving]
  - Gingival swelling [Unknown]
  - Product use issue [Unknown]
  - Pain [Unknown]
  - Aspartate aminotransferase increased [Unknown]
  - Osteonecrosis of jaw [Recovered/Resolved with Sequelae]

NARRATIVE: CASE EVENT DATE: 20121109
